FAERS Safety Report 18285082 (Version 1)
Quarter: 2020Q3

REPORT INFORMATION
  Report Type: Spontaneous
  Country: FR (occurrence: FR)
  Receive Date: 20200919
  Receipt Date: 20200919
  Transmission Date: 20201103
  Serious: Yes (Other)
  Sender: FDA-Public Use
  Company Number: FR-SUN PHARMACEUTICAL INDUSTRIES LTD-2020RR-261561

PATIENT
  Age: 23 Year
  Sex: Male

DRUGS (1)
  1. SUMATRIPTAN SUN 3 MG/0,5 ML SOLUTION INJECTABLE EN STYLO PR??REMPLI [Suspect]
     Active Substance: SUMATRIPTAN SUCCINATE
     Indication: CLUSTER HEADACHE
     Dosage: IN TOTAL
     Route: 058
     Dates: start: 202007, end: 202007

REACTIONS (1)
  - Burning sensation [Recovered/Resolved]

NARRATIVE: CASE EVENT DATE: 202007
